FAERS Safety Report 13341810 (Version 1)
Quarter: 2017Q1

REPORT INFORMATION
  Report Type: Spontaneous
  Country: US (occurrence: US)
  Receive Date: 20170316
  Receipt Date: 20170316
  Transmission Date: 20170428
  Serious: No
  Sender: FDA-Public Use
  Company Number: US-ROCHE-1861534

PATIENT
  Sex: Female

DRUGS (5)
  1. CLARITIN (UNITED STATES) [Concomitant]
  2. ERIVEDGE [Suspect]
     Active Substance: VISMODEGIB
     Indication: BASAL CELL CARCINOMA
     Route: 048
     Dates: start: 20161028
  3. PEPCID (UNITED STATES) [Concomitant]
  4. BENADRYL [Concomitant]
     Active Substance: DIPHENHYDRAMINE HYDROCHLORIDE
  5. FLONASE (UNITED STATES) [Concomitant]

REACTIONS (3)
  - Swelling [Recovered/Resolved with Sequelae]
  - Tongue discomfort [Recovered/Resolved]
  - Weight increased [Recovered/Resolved with Sequelae]
